FAERS Safety Report 20833308 (Version 1)
Quarter: 2022Q2

REPORT INFORMATION
  Report Type: Spontaneous
  Country: IT (occurrence: IT)
  Receive Date: 20220516
  Receipt Date: 20220516
  Transmission Date: 20220721
  Serious: Yes (Hospitalization)
  Sender: FDA-Public Use
  Company Number: IT-MYLANLABS-2022M1035915

PATIENT
  Age: 27 Year
  Sex: Male

DRUGS (3)
  1. AMIODARONE [Suspect]
     Active Substance: AMIODARONE
     Indication: Arrhythmia supraventricular
     Dosage: 200 MILLIGRAM, QD
     Route: 065
     Dates: start: 2016
  2. NADOLOL [Suspect]
     Active Substance: NADOLOL
     Indication: Arrhythmia supraventricular
     Dosage: 40 MILLIGRAM, QD
     Route: 065
     Dates: start: 2016
  3. ISOPROTERENOL [Concomitant]
     Active Substance: ISOPROTERENOL
     Indication: Arrhythmia supraventricular
     Dosage: UNK, INFUSION
     Dates: start: 2016

REACTIONS (1)
  - Drug ineffective [Unknown]

NARRATIVE: CASE EVENT DATE: 20160101
